FAERS Safety Report 8134680-4 (Version None)
Quarter: 2012Q1

REPORT INFORMATION
  Report Type: 
  Country: None (occurrence: None)
  Receive Date: 20120214
  Receipt Date: 20120203
  Transmission Date: 20120608
  Serious: Yes (Other)
  Sender: FDA-Public Use
  Company Number: JP-AMGEN-JPNSP2012009202

PATIENT
  Sex: Male

DRUGS (3)
  1. CINACALCET HYDROCHLORIDE [Suspect]
     Dosage: 25 MG, QD
     Route: 048
     Dates: start: 20111201
  2. CINACALCET HYDROCHLORIDE [Suspect]
     Indication: HYPERPARATHYROIDISM SECONDARY
     Dosage: 25 MG, UNK
     Route: 048
  3. CINACALCET HYDROCHLORIDE [Suspect]
     Dosage: 25 MG, 3 TIMES/WK
     Route: 048

REACTIONS (1)
  - VENTRICULAR TACHYCARDIA [None]
